FAERS Safety Report 21740928 (Version 1)
Quarter: 2022Q4

REPORT INFORMATION
  Report Type: Spontaneous
  Country: US (occurrence: None)
  Receive Date: 20221215
  Receipt Date: 20221215
  Transmission Date: 20230112
  Serious: Yes (Hospitalization)
  Sender: FDA-Public Use
  Company Number: None

PATIENT
  Age: 63 Year
  Sex: Male

DRUGS (2)
  1. BUMETANIDE [Suspect]
     Active Substance: BUMETANIDE
     Indication: Cardiac failure congestive
     Dosage: 1 MG EVERY DAY PO?
     Route: 048
     Dates: start: 20190117, end: 20190128
  2. HYDRALAZINE HYDROCHLORIDE [Suspect]
     Active Substance: HYDRALAZINE HYDROCHLORIDE
     Indication: Hypertension
     Dosage: 50 MG TID PO?
     Route: 048
     Dates: start: 20190318

REACTIONS (5)
  - Dizziness [None]
  - Hypotension [None]
  - Syncope [None]
  - Dehydration [None]
  - Mental status changes [None]

NARRATIVE: CASE EVENT DATE: 20190128
